FAERS Safety Report 9094493 (Version 1)
Quarter: 2013Q1

REPORT INFORMATION
  Report Type: Spontaneous
  Country: US (occurrence: US)
  Receive Date: 20130219
  Receipt Date: 20130219
  Transmission Date: 20140127
  Serious: Yes (Hospitalization)
  Sender: FDA-Public Use
  Company Number: PHHY2012US127500

PATIENT
  Sex: Male

DRUGS (1)
  1. DICLOFENAC [Suspect]
     Indication: INFLAMMATION

REACTIONS (1)
  - Fall [Unknown]
